FAERS Safety Report 11970738 (Version 1)
Quarter: 2016Q1

REPORT INFORMATION
  Report Type: Spontaneous
  Country: US (occurrence: None)
  Receive Date: 20160127
  Receipt Date: 20160127
  Transmission Date: 20160526
  Serious: No
  Sender: FDA-Public Use
  Company Number: None

PATIENT
  Age: 63 Year
  Sex: Male
  Weight: 70.5 kg

DRUGS (2)
  1. MORPHINE [Suspect]
     Active Substance: MORPHINE
     Indication: PAIN
     Route: 048
     Dates: start: 20150511
  2. CYPROHEPTADINE. [Suspect]
     Active Substance: CYPROHEPTADINE
     Indication: MUSCLE SPASTICITY
     Route: 048
     Dates: start: 20151009, end: 20151009

REACTIONS (4)
  - Lethargy [None]
  - Sedation [None]
  - Urinary tract infection [None]
  - Drug interaction [None]

NARRATIVE: CASE EVENT DATE: 20151009
